FAERS Safety Report 21232481 (Version 1)
Quarter: 2022Q3

REPORT INFORMATION
  Report Type: Spontaneous
  Country: US (occurrence: None)
  Receive Date: 20220818
  Receipt Date: 20220818
  Transmission Date: 20221027
  Serious: No
  Sender: FDA-Public Use
  Company Number: None

PATIENT
  Sex: Female

DRUGS (2)
  1. OXBRYTA [Suspect]
     Active Substance: VOXELOTOR
     Indication: Sickle cell disease
  2. PROCRIT [Suspect]
     Active Substance: ERYTHROPOIETIN
     Indication: Sickle cell disease
     Dosage: 1ML WEEKLY SUBCUTANEOUS
     Route: 058
     Dates: start: 20150812

REACTIONS (3)
  - Sickle cell anaemia with crisis [None]
  - Diarrhoea [None]
  - Chest pain [None]
